FAERS Safety Report 24269344 (Version 1)
Quarter: 2024Q3

REPORT INFORMATION
  Report Type: Spontaneous
  Country: US (occurrence: None)
  Receive Date: 20240830
  Receipt Date: 20240830
  Transmission Date: 20241017
  Serious: Yes (Life-Threatening, Hospitalization)
  Sender: Public
  Company Number: None

PATIENT
  Age: 65 Year
  Sex: Female
  Weight: 83.7 kg

DRUGS (4)
  1. DIETARY SUPPLEMENT\HERBALS [Suspect]
     Active Substance: DIETARY SUPPLEMENT\HERBALS
     Indication: Thrombocytopenia
     Dates: start: 20240101, end: 20240401
  2. DIETARY SUPPLEMENT\HERBALS [Suspect]
     Active Substance: DIETARY SUPPLEMENT\HERBALS
     Indication: Hyperglycaemic hyperosmolar nonketotic syndrome
  3. PREDNISONE [Suspect]
     Active Substance: PREDNISONE
     Indication: Thrombocytopenia
     Dates: start: 20240101, end: 20240401
  4. PREDNISONE [Suspect]
     Active Substance: PREDNISONE
     Indication: Hyperglycaemic hyperosmolar nonketotic syndrome

REACTIONS (2)
  - Thrombocytopenia [None]
  - Hyperglycaemic hyperosmolar nonketotic syndrome [None]

NARRATIVE: CASE EVENT DATE: 20240827
